FAERS Safety Report 10171889 (Version 2)
Quarter: 2014Q2

REPORT INFORMATION
  Report Type: Spontaneous
  Country: FR (occurrence: FR)
  Receive Date: 20140514
  Receipt Date: 20140620
  Transmission Date: 20141212
  Serious: Yes (Disabling)
  Sender: FDA-Public Use
  Company Number: FR-ABBVIE-14P-056-1236598-00

PATIENT
  Age: 46 Year
  Sex: Female

DRUGS (1)
  1. ENANTONE [Suspect]
     Indication: ENDOMETRIOSIS
     Route: 030
     Dates: start: 1984

REACTIONS (6)
  - Gait disturbance [Not Recovered/Not Resolved]
  - Osteopenia [Not Recovered/Not Resolved]
  - Bone pain [Not Recovered/Not Resolved]
  - Injection site pain [Not Recovered/Not Resolved]
  - Injection site nodule [Not Recovered/Not Resolved]
  - Off label use [Not Recovered/Not Resolved]
